FAERS Safety Report 4309126-4 (Version None)
Quarter: 2004Q1

REPORT INFORMATION
  Report Type: 
  Country: None (occurrence: None)
  Receive Date: 20040227
  Receipt Date: 20040217
  Transmission Date: 20041129
  Serious: Yes (Hospitalization)
  Sender: FDA-Public Use
  Company Number: 2004PK00066

PATIENT
  Age: 64 Year
  Sex: Female
  Weight: 82 kg

DRUGS (2)
  1. ARIMIDEX [Suspect]
     Indication: BREAST CANCER
     Dosage: 1 MG DAILY PO
     Route: 048
     Dates: start: 20011210
  2. NOLVADEX [Suspect]
     Indication: BREAST CANCER
     Dosage: 20 MG DAILY PO
     Route: 048
     Dates: start: 19991206, end: 20011209

REACTIONS (4)
  - CERVICITIS [None]
  - ENDOMETRIAL HYPERPLASIA [None]
  - UTERINE ATROPHY [None]
  - UTERINE POLYP [None]
